FAERS Safety Report 4519657-X (Version None)
Quarter: 2004Q4

REPORT INFORMATION
  Report Type: 
  Country: None (occurrence: None)
  Receive Date: 20041206
  Receipt Date: 20041124
  Transmission Date: 20050328
  Serious: Yes (Hospitalization)
  Sender: FDA-Public Use
  Company Number: ES-JNJFOC-20041004741

PATIENT
  Sex: Female

DRUGS (1)
  1. REMICADE [Suspect]
     Indication: RELAPSING POLYCHONDRITIS
     Route: 042

REACTIONS (1)
  - BRONCHOPULMONARY ASPERGILLOSIS [None]
